FAERS Safety Report 13860955 (Version 1)
Quarter: 2017Q3

REPORT INFORMATION
  Report Type: Spontaneous
  Country: US (occurrence: US)
  Receive Date: 20170811
  Receipt Date: 20170811
  Transmission Date: 20171127
  Serious: No
  Sender: FDA-Public Use
  Company Number: US-LEXICON PHARMACEUTICALS, INC-17-1606-00613

PATIENT
  Age: 68 Year
  Sex: Female

DRUGS (2)
  1. TELOTRISTAT ETHYL [Suspect]
     Active Substance: TELOTRISTAT ETHYL
     Indication: CARCINOID TUMOUR
     Route: 048
     Dates: start: 20170708, end: 20170721
  2. AFINITOR [Concomitant]
     Active Substance: EVEROLIMUS
     Dates: end: 20170721

REACTIONS (5)
  - Dyspnoea [Unknown]
  - Nausea [Unknown]
  - Tremor [Unknown]
  - Adverse drug reaction [Unknown]
  - Aphasia [Unknown]

NARRATIVE: CASE EVENT DATE: 20170720
